FAERS Safety Report 10213133 (Version 1)
Quarter: 2014Q2

REPORT INFORMATION
  Report Type: Spontaneous
  Country: CN (occurrence: CN)
  Receive Date: 20140603
  Receipt Date: 20140603
  Transmission Date: 20141212
  Serious: No
  Sender: FDA-Public Use
  Company Number: CN-009507513-1406CHN000714

PATIENT
  Age: 31 Year
  Sex: Female

DRUGS (1)
  1. MARVELON (IN ROMAN AND CHINESE) [Suspect]
     Route: 048

REACTIONS (1)
  - Haemorrhage [Unknown]
